FAERS Safety Report 16968854 (Version 1)
Quarter: 2019Q4

REPORT INFORMATION
  Report Type: Spontaneous
  Country: DE (occurrence: DE)
  Receive Date: 20191029
  Receipt Date: 20191029
  Transmission Date: 20200122
  Serious: Yes (Death, Hospitalization, Other)
  Sender: FDA-Public Use
  Company Number: DE-TEVA-2019-DE-1127621

PATIENT
  Age: 72 Year
  Sex: Male
  Weight: 70 kg

DRUGS (10)
  1. VINCRISTINE [Suspect]
     Active Substance: VINCRISTINE
     Indication: DIFFUSE LARGE B-CELL LYMPHOMA
     Dosage: 1 MILLIGRAM
     Route: 040
     Dates: start: 20150319, end: 20150611
  2. DOXORUBICIN [Suspect]
     Active Substance: DOXORUBICIN
     Indication: DIFFUSE LARGE B-CELL LYMPHOMA
     Dosage: DAILY DOSE: 90 MG MILLGRAM(S) EVERY 2 WEEKS
     Route: 042
     Dates: start: 20150324, end: 20150611
  3. CYCLOPHOSPHAMID [Suspect]
     Active Substance: CYCLOPHOSPHAMIDE
     Indication: DIFFUSE LARGE B-CELL LYMPHOMA
     Dosage: DAILY DOSE: 1370 MG MILLGRAM(S) EVERY 2 WEEKS
     Route: 042
     Dates: start: 20150324, end: 20150611
  4. PREDNISOLONE. [Concomitant]
     Active Substance: PREDNISOLONE
     Indication: NAUSEA
     Dosage: 100 MILLIGRAM, DAY 1-5
     Route: 048
     Dates: start: 20150319, end: 20150611
  5. NEULASTA [Concomitant]
     Active Substance: PEGFILGRASTIM
     Indication: PROPHYLAXIS
     Dosage: DAILY DOSE: 6 MG MILLGRAM(S) EVERY 2 WEEKS
     Route: 058
     Dates: start: 20150324
  6. MABTHERA [Suspect]
     Active Substance: RITUXIMAB
     Dosage: DAILY DOSE: 1400 MG MILLGRAM(S) EVERY 2 WEEKS
     Route: 058
     Dates: start: 20150408
  7. MABTHERA [Suspect]
     Active Substance: RITUXIMAB
     Indication: DIFFUSE LARGE B-CELL LYMPHOMA
     Dosage: DAILY DOSE: 1400 MG MILLGRAM(S) EVERY 2 WEEKS
     Route: 058
     Dates: start: 20150323, end: 20150611
  8. RITUXIMAB/VORHYALURONIDASE ALFA [Suspect]
     Active Substance: HYALURONIDASE (HUMAN RECOMBINANT)\RITUXIMAB
     Dosage: 1400 MILLIGRAM
     Route: 058
     Dates: start: 20150319, end: 20150611
  9. GRANISETRON [Concomitant]
     Active Substance: GRANISETRON
     Indication: NAUSEA
     Dosage: DAILY DOSE: 1 MG MILLGRAM(S) EVERY 2 WEEKS
     Route: 042
     Dates: start: 20150319, end: 20150611
  10. UROMITEXAN [Concomitant]
     Active Substance: MESNA
     Dosage: DAILY DOSE: 1800 MG MILLGRAM(S) EVERY 2 WEEKS
     Route: 048
     Dates: start: 20150324, end: 20150611

REACTIONS (6)
  - Leukopenia [Fatal]
  - Pulmonary toxicity [Fatal]
  - Anaemia [Fatal]
  - General physical health deterioration [Fatal]
  - Sepsis [Fatal]
  - Pneumonia [Fatal]

NARRATIVE: CASE EVENT DATE: 20150402
